FAERS Safety Report 9605286 (Version 1)
Quarter: 2013Q4

REPORT INFORMATION
  Report Type: Spontaneous
  Country: US (occurrence: US)
  Receive Date: 20131008
  Receipt Date: 20131008
  Transmission Date: 20140711
  Serious: Yes (Other)
  Sender: FDA-Public Use
  Company Number: US-ELI_LILLY_AND_COMPANY-US201310000107

PATIENT
  Sex: Female

DRUGS (2)
  1. EFFIENT [Suspect]
     Dosage: 5 MG, UNKNOWN
     Route: 048
     Dates: start: 201305, end: 201308
  2. EFFIENT [Suspect]
     Dosage: UNK
     Dates: start: 20130923

REACTIONS (1)
  - Intracranial aneurysm [Unknown]
